FAERS Safety Report 13252711 (Version 3)
Quarter: 2017Q3

REPORT INFORMATION
  Report Type: Report from Study
  Country: US (occurrence: US)
  Receive Date: 20170220
  Receipt Date: 20170728
  Transmission Date: 20171127
  Serious: No
  Sender: FDA-Public Use
  Company Number: PHEH2017US004894

PATIENT
  Age: 41 Year
  Sex: Female
  Weight: 74.83 kg

DRUGS (4)
  1. EXTAVIA [Suspect]
     Active Substance: INTERFERON BETA-1B
     Dosage: WEEKS 5-6: 0.187 MG,(0.75 ML), QOD
     Route: 058
  2. EXTAVIA [Suspect]
     Active Substance: INTERFERON BETA-1B
     Dosage: WEEK 7+: 0.25 MG, (1 ML) QOD
     Route: 058
  3. EXTAVIA [Suspect]
     Active Substance: INTERFERON BETA-1B
     Indication: MULTIPLE SCLEROSIS
     Dosage: WEEKS 1-2: 0.0625MG (0.25ML) QOD
     Route: 058
     Dates: start: 20170207
  4. EXTAVIA [Suspect]
     Active Substance: INTERFERON BETA-1B
     Dosage: WEEK 3-4: 0.125 MG, (0.25 ML) QOD
     Route: 058

REACTIONS (8)
  - Pyrexia [Recovering/Resolving]
  - Injection site haemorrhage [Unknown]
  - Somnolence [Unknown]
  - Injection site pain [Not Recovered/Not Resolved]
  - Tension [Not Recovered/Not Resolved]
  - Injection site erythema [Not Recovered/Not Resolved]
  - Insomnia [Unknown]
  - Fatigue [Unknown]

NARRATIVE: CASE EVENT DATE: 20170207
